FAERS Safety Report 19525197 (Version 1)
Quarter: 2021Q3

REPORT INFORMATION
  Report Type: Report from Study
  Country: None (occurrence: US)
  Receive Date: 20210712
  Receipt Date: 20210712
  Transmission Date: 20211014
  Serious: Yes (Other)
  Sender: FDA-Public Use
  Company Number: US-ABBVIE-21K-163-3983869-00

PATIENT
  Age: 76 Year
  Sex: Female

DRUGS (2)
  1. ONDANSETRON [Suspect]
     Active Substance: ONDANSETRON
     Indication: PRODUCT USED FOR UNKNOWN INDICATION
     Route: 065
  2. VENCLEXTA [Suspect]
     Active Substance: VENETOCLAX
     Indication: ACUTE MYELOID LEUKAEMIA
     Route: 048
     Dates: start: 20210621

REACTIONS (7)
  - Platelet count abnormal [Unknown]
  - Constipation [Unknown]
  - White blood cell count decreased [Unknown]
  - Neutrophil count decreased [Unknown]
  - Nausea [Unknown]
  - Body temperature increased [Recovering/Resolving]
  - Malaise [Recovering/Resolving]

NARRATIVE: CASE EVENT DATE: 2021
